FAERS Safety Report 25531787 (Version 1)
Quarter: 2025Q3

REPORT INFORMATION
  Report Type: Spontaneous
  Country: US (occurrence: US)
  Receive Date: 20250709
  Receipt Date: 20250709
  Transmission Date: 20251020
  Serious: No
  Sender: ROCHE
  Company Number: US-ROCHE-10000332325

PATIENT
  Sex: Male

DRUGS (3)
  1. HEMLIBRA [Suspect]
     Active Substance: EMICIZUMAB-KXWH
     Indication: Factor VIII deficiency
     Dosage: STRENGTH- 150MG/ML
     Route: 058
     Dates: start: 202212
  2. ELOCTATE INJECTION [Concomitant]
     Route: 042
  3. ELOCTATE INJECTION [Concomitant]
     Route: 042

REACTIONS (2)
  - Limb injury [Unknown]
  - Haemorrhage [Unknown]
